FAERS Safety Report 24386822 (Version 1)
Quarter: 2024Q4

REPORT INFORMATION
  Report Type: Spontaneous
  Country: US (occurrence: US)
  Receive Date: 20241002
  Receipt Date: 20241002
  Transmission Date: 20250114
  Serious: Yes (Other)
  Sender: ABBVIE
  Company Number: US-ABBVIE-5943396

PATIENT
  Sex: Female

DRUGS (1)
  1. CREON [Suspect]
     Active Substance: PANCRELIPASE AMYLASE\PANCRELIPASE LIPASE\PANCRELIPASE PROTEASE
     Indication: Pancreatic disorder
     Dosage: DOSAGE: 12000 USP^U FORM STRENGTH:12000 UNIT
     Route: 048
     Dates: start: 2011

REACTIONS (8)
  - Surgery [Unknown]
  - Abdominal discomfort [Not Recovered/Not Resolved]
  - Colostomy [Unknown]
  - Condition aggravated [Unknown]
  - Abdominal distension [Not Recovered/Not Resolved]
  - Product packaging quantity issue [Not Recovered/Not Resolved]
  - Muscle spasms [Not Recovered/Not Resolved]
  - Therapeutic product effect incomplete [Unknown]
